FAERS Safety Report 6107589-5 (Version None)
Quarter: 2009Q1

REPORT INFORMATION
  Report Type: 
  Country: None (occurrence: None)
  Receive Date: 20090302
  Receipt Date: 20081218
  Transmission Date: 20090719
  Serious: Yes (Other)
  Sender: FDA-Public Use
  Company Number: WAES 0812USA04117

PATIENT
  Age: 55 Year
  Sex: Female

DRUGS (2)
  1. PRINIVIL [Suspect]
     Dosage: 20 MG/PO : 10 MG/PO
     Route: 048
     Dates: start: 20081117, end: 20081210
  2. PRINIVIL [Suspect]
     Dosage: 20 MG/PO : 10 MG/PO
     Route: 048
     Dates: start: 20081213

REACTIONS (3)
  - CEREBROVASCULAR ACCIDENT [None]
  - FATIGUE [None]
  - SOMNOLENCE [None]
